FAERS Safety Report 7541595-9 (Version None)
Quarter: 2011Q2

REPORT INFORMATION
  Report Type: 
  Country: None (occurrence: None)
  Receive Date: 20110613
  Receipt Date: 20110606
  Transmission Date: 20111010
  Serious: Yes (Death)
  Sender: FDA-Public Use
  Company Number: CH-ELI_LILLY_AND_COMPANY-CH201106002675

PATIENT
  Age: 71 Year
  Sex: Male
  Weight: 86.2 kg

DRUGS (5)
  1. ZYPREXA [Suspect]
     Dosage: 10 MG, SINGLE
     Route: 030
     Dates: start: 20110509
  2. VALIUM [Concomitant]
     Dosage: 10 MG, SINGLE
     Route: 030
     Dates: start: 20110509
  3. ZYPREXA [Suspect]
     Dosage: 10 MG, SINGLE
     Route: 030
     Dates: start: 20110505
  4. VALIUM [Concomitant]
     Dosage: 10 MG, SINGLE
     Route: 030
     Dates: start: 20110505
  5. NIFEDIPINE [Concomitant]
     Dosage: 20 MG, UNK
     Dates: start: 20110508

REACTIONS (2)
  - CARDIAC ARREST [None]
  - AGGRESSION [None]
